FAERS Safety Report 6709881-X (Version None)
Quarter: 2010Q2

REPORT INFORMATION
  Report Type: 
  Country: None (occurrence: None)
  Receive Date: 20100504
  Receipt Date: 20100423
  Transmission Date: 20101027
  Serious: Yes (Other)
  Sender: FDA-Public Use
  Company Number: SE-JNJFOC-20091005601

PATIENT
  Sex: Female

DRUGS (2)
  1. REMICADE [Suspect]
     Indication: CROHN'S DISEASE
     Dosage: 3 INFUSIONS IN AUG-2008
     Route: 042
     Dates: start: 20080801, end: 20091008
  2. REMICADE [Suspect]
     Route: 042
     Dates: start: 20080801, end: 20091008

REACTIONS (3)
  - DRUG EXPOSURE DURING PREGNANCY [None]
  - POSTPARTUM HAEMORRHAGE [None]
  - RETAINED PLACENTA OR MEMBRANES [None]
